FAERS Safety Report 9994997 (Version 1)
Quarter: 2014Q1

REPORT INFORMATION
  Report Type: Spontaneous
  Country: CH (occurrence: None)
  Receive Date: 20140306
  Receipt Date: 20140306
  Transmission Date: 20141002
  Serious: Yes (Life-Threatening)
  Sender: FDA-Public Use
  Company Number: 20140092

PATIENT
  Age: 17 Year
  Sex: Female

DRUGS (1)
  1. FERINJECT [Suspect]
     Indication: PRODUCT USED FOR UNKNOWN INDICATION
     Dosage: OVER 75
     Route: 041
     Dates: start: 20131113, end: 20131113

REACTIONS (6)
  - Blister [None]
  - Rash pruritic [None]
  - Dermatitis bullous [None]
  - Throat tightness [None]
  - Chest discomfort [None]
  - Erythema [None]
